FAERS Safety Report 5634465-4 (Version None)
Quarter: 2008Q1

REPORT INFORMATION
  Report Type: 
  Country: None (occurrence: None)
  Receive Date: 20080222
  Receipt Date: 20080218
  Transmission Date: 20080703
  Serious: Yes (Other)
  Sender: FDA-Public Use
  Company Number: US-ASTRAZENECA-2008UW03343

PATIENT
  Age: 76 Year
  Sex: Female
  Weight: 82.6 kg

DRUGS (6)
  1. ARIMIDEX [Suspect]
     Indication: BREAST CANCER
     Route: 048
  2. LOVENOX [Concomitant]
  3. DIABETIC PUMP [Concomitant]
  4. THYROID TAB [Concomitant]
  5. COZAAR [Concomitant]
  6. LOPRESSOR [Concomitant]

REACTIONS (1)
  - MESENTERIC VEIN THROMBOSIS [None]
